FAERS Safety Report 5977971-5 (Version None)
Quarter: 2008Q4

REPORT INFORMATION
  Report Type: 
  Country: None (occurrence: None)
  Receive Date: 20081203
  Receipt Date: 20081124
  Transmission Date: 20090506
  Serious: Yes (Disabling)
  Sender: FDA-Public Use
  Company Number: FR-B.I. PHARMACEUTICALS,INC./RIDGEFIELD-2004-FF-00210FF

PATIENT
  Sex: Female
  Weight: 15 kg

DRUGS (8)
  1. VIRAMUNE [Suspect]
     Indication: HUMAN IMMUNODEFICIENCY VIRUS TRANSMISSION
     Route: 048
     Dates: start: 20000727, end: 20000729
  2. VIRAMUNE [Suspect]
     Indication: PROPHYLAXIS
  3. DIDANOSINE [Concomitant]
     Indication: HUMAN IMMUNODEFICIENCY VIRUS TRANSMISSION
     Route: 064
  4. DIDANOSINE [Concomitant]
     Indication: PROPHYLAXIS
  5. LAMIVUDINE [Concomitant]
     Indication: HUMAN IMMUNODEFICIENCY VIRUS TRANSMISSION
     Route: 064
  6. LAMIVUDINE [Concomitant]
     Indication: PROPHYLAXIS
  7. RITONAVIR [Concomitant]
     Indication: HUMAN IMMUNODEFICIENCY VIRUS TRANSMISSION
     Route: 064
  8. RITONAVIR [Concomitant]
     Indication: PROPHYLAXIS

REACTIONS (5)
  - ANAEMIA [None]
  - NEOPLASM MALIGNANT [None]
  - NEUTROPENIA [None]
  - RETINAL INJURY [None]
  - STRABISMUS [None]
